FAERS Safety Report 15350566 (Version 1)
Quarter: 2018Q4

REPORT INFORMATION
  Report Type: Spontaneous
  Country: US (occurrence: US)
  Receive Date: 20180905
  Receipt Date: 20180905
  Transmission Date: 20190204
  Serious: Yes (Other)
  Sender: FDA-Public Use
  Company Number: US-ABBVIE-18S-163-2469432-00

PATIENT
  Sex: Female

DRUGS (6)
  1. SPT THYROID [Suspect]
     Active Substance: LEVOTHYROXINE SODIUM
     Indication: PRODUCT USED FOR UNKNOWN INDICATION
     Route: 048
     Dates: start: 1980
  2. CYTOMEL [Suspect]
     Active Substance: LIOTHYRONINE SODIUM
     Indication: THYROID THERAPY
     Dosage: CUT THE CYTOMEL IN HALF AND THEN TO THIRD
     Route: 048
     Dates: start: 1992
  3. SIMETHICONE (DIMETHICONE) [Concomitant]
     Active Substance: DIMETHICONE
     Indication: FLATULENCE
  4. GAS RELIEF REGULAR STRENGHT BY SUNMARK [Concomitant]
     Indication: FLATULENCE
  5. SYNTHROID [Suspect]
     Active Substance: LEVOTHYROXINE SODIUM
     Indication: PRODUCT USED FOR UNKNOWN INDICATION
     Route: 048
  6. GAS-X [Concomitant]
     Active Substance: DIMETHICONE
     Indication: FLATULENCE

REACTIONS (11)
  - Chest discomfort [Unknown]
  - Lymphoma [Unknown]
  - Breast cancer [Recovered/Resolved]
  - Urinary tract infection [Unknown]
  - Blood thyroid stimulating hormone increased [Unknown]
  - Throat tightness [Unknown]
  - Overdose [Unknown]
  - Palpitations [Recovered/Resolved]
  - Adverse drug reaction [Unknown]
  - Drug hypersensitivity [Unknown]
  - Weight fluctuation [Unknown]

NARRATIVE: CASE EVENT DATE: 2015
